FAERS Safety Report 5973845-4 (Version None)
Quarter: 2008Q4

REPORT INFORMATION
  Report Type: 
  Country: None (occurrence: None)
  Receive Date: 20081201
  Receipt Date: 20081118
  Transmission Date: 20090506
  Serious: Yes (Death, Hospitalization)
  Sender: FDA-Public Use
  Company Number: GB-ROCHE-597906

PATIENT
  Age: 70 Year
  Sex: Male

DRUGS (2)
  1. XELODA [Suspect]
     Route: 065
  2. OXALIPLATINE [Suspect]
     Route: 065

REACTIONS (5)
  - DEATH [None]
  - DIARRHOEA [None]
  - MALAISE [None]
  - NAUSEA [None]
  - SOMNOLENCE [None]
